FAERS Safety Report 4269973-4 (Version None)
Quarter: 2004Q1

REPORT INFORMATION
  Report Type: 
  Country: None (occurrence: None)
  Receive Date: 20040112
  Receipt Date: 20031229
  Transmission Date: 20041129
  Serious: Yes (Hospitalization)
  Sender: FDA-Public Use
  Company Number: US-JNJFOC-20040100413

PATIENT
  Age: 72 Year
  Sex: Male
  Weight: 83.9154 kg

DRUGS (13)
  1. INFLIXIMAB  (INFLIXIMAB, RECOMBINANT) LYOPHILIZED POWDER [Suspect]
     Indication: RHEUMATOID ARTHRITIS
     Dosage: INTRAVENOUS
     Route: 042
     Dates: start: 20000602
  2. METHOTREXATE [Concomitant]
  3. CELEBREX [Concomitant]
  4. LANOXIN [Concomitant]
  5. PREVACID [Concomitant]
  6. AVALIDE (KARVEA HCT) [Concomitant]
  7. FOLIC ACID [Concomitant]
  8. GUAFENESIN (GUAIFENESIN) [Concomitant]
  9. NORVASC [Concomitant]
  10. ASPIRIN [Concomitant]
  11. CITRACAL (CALCIUM CITRATE) [Concomitant]
  12. MULTIVITAMIN [Concomitant]
  13. ALLERGY INJECTIONS (ALLERGY MEDICATION) [Concomitant]

REACTIONS (4)
  - ATRIAL FIBRILLATION [None]
  - BLOOD PRESSURE INCREASED [None]
  - MYOCARDIAL INFARCTION [None]
  - NAUSEA [None]
